FAERS Safety Report 6176628-8 (Version None)
Quarter: 2009Q2

REPORT INFORMATION
  Report Type: 
  Country: None (occurrence: None)
  Receive Date: 20090501
  Receipt Date: 20090421
  Transmission Date: 20091009
  Serious: Yes (Hospitalization)
  Sender: FDA-Public Use
  Company Number: HU-ABBOTT-09P-076-0565663-00

PATIENT
  Sex: Female
  Weight: 76 kg

DRUGS (6)
  1. HUMIRA [Suspect]
     Indication: RHEUMATOID ARTHRITIS
     Route: 058
     Dates: start: 20081014, end: 20090324
  2. METHOTREXATE [Suspect]
     Indication: RHEUMATOID ARTHRITIS
     Route: 048
     Dates: start: 20081015, end: 20090318
  3. AFLAMIN [Concomitant]
     Indication: RHEUMATOID ARTHRITIS
     Dates: start: 20080815
  4. APOLAR [Concomitant]
     Indication: OSTEOPOROSIS
     Dosage: WEEKLY
     Dates: start: 20080815
  5. VITAMIN D3 [Concomitant]
     Indication: OSTEOPOROSIS
     Dates: start: 20080815
  6. CITRO-CALCIUM [Concomitant]
     Indication: OSTEOPOROSIS
     Dates: start: 20080815

REACTIONS (1)
  - PNEUMONITIS [None]
